FAERS Safety Report 9752341 (Version 1)
Quarter: 2013Q4

REPORT INFORMATION
  Report Type: Spontaneous
  Country: US (occurrence: None)
  Receive Date: 20131212
  Receipt Date: 20131212
  Transmission Date: 20140711
  Serious: Yes (Hospitalization, Disabling, Other)
  Sender: FDA-Public Use
  Company Number: None

PATIENT
  Age: 69 Year
  Sex: Male
  Weight: 95.26 kg

DRUGS (2)
  1. LEVAQUIN [Suspect]
     Indication: VOMITING
     Dosage: IV IN HOSPITAL AS NEEDED INTO A VEIN
     Route: 042
     Dates: start: 20120801, end: 20120831
  2. LEVAQUIN [Suspect]
     Indication: COUGH
     Dosage: IV IN HOSPITAL AS NEEDED INTO A VEIN
     Route: 042
     Dates: start: 20120801, end: 20120831

REACTIONS (4)
  - Dizziness [None]
  - Vertigo [None]
  - Tendonitis [None]
  - Gait disturbance [None]
